FAERS Safety Report 7937218-7 (Version None)
Quarter: 2011Q4

REPORT INFORMATION
  Report Type: 
  Country: None (occurrence: None)
  Receive Date: 20111123
  Receipt Date: 20111117
  Transmission Date: 20120403
  Serious: Yes (Death)
  Sender: FDA-Public Use
  Company Number: US-GLAXOSMITHKLINE-A0954216A

PATIENT
  Age: 47 Year
  Sex: Female

DRUGS (5)
  1. RITUXIMAB [Concomitant]
     Dates: start: 20080212, end: 20080219
  2. PROMACTA [Suspect]
     Indication: AUTOIMMUNE THROMBOCYTOPENIA
     Route: 048
  3. ROMIPLOSTIM [Concomitant]
     Dates: start: 20090304, end: 20090416
  4. IMMUNE GLOBULIN INTRAVENOUS (HUMAN) [Concomitant]
     Dates: start: 20080202, end: 20090225
  5. CORTICOSTEROIDS [Concomitant]

REACTIONS (1)
  - DEATH [None]
